FAERS Safety Report 8246876-1 (Version None)
Quarter: 2012Q1

REPORT INFORMATION
  Report Type: 
  Country: None (occurrence: None)
  Receive Date: 20120330
  Receipt Date: 20120316
  Transmission Date: 20120608
  Serious: Yes (Other)
  Sender: FDA-Public Use
  Company Number: IN-RANBAXY-2012RR-54093

PATIENT
  Age: 26 Year
  Sex: Male
  Weight: 53 kg

DRUGS (2)
  1. MIDAZOLAM [Suspect]
     Indication: ANXIETY
     Dosage: 1 MG, UNK
     Route: 042
  2. LACTATED RINGER'S [Concomitant]
     Indication: PRODUCT USED FOR UNKNOWN INDICATION
     Route: 042

REACTIONS (1)
  - ANAPHYLACTIC REACTION [None]
